FAERS Safety Report 5027575-6 (Version None)
Quarter: 2006Q2

REPORT INFORMATION
  Report Type: 
  Country: None (occurrence: None)
  Receive Date: 20060616
  Receipt Date: 20060306
  Transmission Date: 20061013
  Serious: Yes (Other)
  Sender: FDA-Public Use
  Company Number: PHEH2006US03079

PATIENT
  Age: 67 Year
  Sex: Male
  Weight: 92.517 kg

DRUGS (4)
  1. ZOCOR [Concomitant]
     Indication: BLOOD CHOLESTEROL INCREASED
     Dosage: 40 MG, QD
     Route: 048
  2. DIOVAN [Suspect]
     Indication: HYPERTENSION
     Dosage: 160 MG, QD
     Route: 048
     Dates: start: 20060201
  3. DIOVAN [Suspect]
     Dosage: 320 MG, QHS
     Route: 048
     Dates: start: 20060208
  4. DIOVAN [Suspect]
     Dosage: 160 MG, QHS
     Route: 048

REACTIONS (3)
  - DIZZINESS [None]
  - FALL [None]
  - LOSS OF CONSCIOUSNESS [None]
